FAERS Safety Report 13738963 (Version 1)
Quarter: 2017Q3

REPORT INFORMATION
  Report Type: Spontaneous
  Country: US (occurrence: US)
  Receive Date: 20170710
  Receipt Date: 20170710
  Transmission Date: 20171127
  Serious: Yes (Other)
  Sender: FDA-Public Use
  Company Number: US-SAOL THERAPEUTICS-2017SAO00725

PATIENT
  Age: 42 Year
  Sex: Female

DRUGS (7)
  1. HYDROMORPHONE [Suspect]
     Active Substance: HYDROMORPHONE
     Dosage: 2.498 MG, \DAY
     Route: 037
     Dates: end: 201704
  2. BACLOFEN. [Suspect]
     Active Substance: BACLOFEN
     Dosage: 41.18 ?G, \DAY
     Route: 037
     Dates: start: 201704
  3. BUPIVACAINE. [Suspect]
     Active Substance: BUPIVACAINE
     Dosage: 0.823 MG, \DAY
     Route: 037
     Dates: start: 201704
  4. BACLOFEN. [Suspect]
     Active Substance: BACLOFEN
     Indication: SPINAL PAIN
     Dosage: 37.44 ?G, \DAY
     Route: 037
     Dates: end: 201704
  5. HYDROMORPHONE [Suspect]
     Active Substance: HYDROMORPHONE
     Dosage: 2.74 MG, \DAY
     Route: 037
     Dates: end: 201704
  6. HYDROMORPHONE [Suspect]
     Active Substance: HYDROMORPHONE
     Dosage: 5.965 MG, \DAY
     Dates: start: 201609
  7. BUPIVACAINE. [Suspect]
     Active Substance: BUPIVACAINE
     Dosage: 0.749 MG, \DAY
     Route: 037
     Dates: end: 201704

REACTIONS (5)
  - Implant site scar [Unknown]
  - Therapeutic product ineffective for unapproved indication [Unknown]
  - Pain [Unknown]
  - Device leakage [Recovered/Resolved]
  - Off label use [Not Recovered/Not Resolved]

NARRATIVE: CASE EVENT DATE: 201609
